FAERS Safety Report 5893245-5 (Version None)
Quarter: 2008Q3

REPORT INFORMATION
  Report Type: 
  Country: None (occurrence: None)
  Receive Date: 20080919
  Receipt Date: 20080903
  Transmission Date: 20090109
  Serious: Yes (Death)
  Sender: FDA-Public Use
  Company Number: 011#1#2008-00001

PATIENT
  Age: 84 Year
  Sex: Female

DRUGS (8)
  1. ISOSORBIDE DINITRATE [Suspect]
     Indication: CARDIAC FAILURE ACUTE
     Dosage: SEE IMAGE
     Route: 041
     Dates: start: 20080326, end: 20080326
  2. ISOSORBIDE DINITRATE [Suspect]
     Indication: CARDIAC FAILURE ACUTE
     Dosage: SEE IMAGE
     Route: 041
     Dates: start: 20080327, end: 20080327
  3. ISOSORBIDE DINITRATE [Suspect]
     Indication: CARDIAC FAILURE ACUTE
     Dosage: SEE IMAGE
     Route: 041
     Dates: start: 20080328, end: 20080329
  4. FUROSEMIDE [Concomitant]
  5. LANATOSIDE C (LANATOSIDE C) [Concomitant]
  6. HAO AO JING [Concomitant]
  7. PIPERACILLIN, SULBACTAM [Concomitant]
  8. CEFOPERAZONE, SULBACTAM [Concomitant]

REACTIONS (1)
  - MEDICATION ERROR [None]
